FAERS Safety Report 26145203 (Version 1)
Quarter: 2025Q4

REPORT INFORMATION
  Report Type: Spontaneous
  Country: AU (occurrence: AU)
  Receive Date: 20251211
  Receipt Date: 20251211
  Transmission Date: 20260117
  Serious: Yes (Other)
  Sender: MYLAN
  Company Number: AU-MYLANLABS-2025M1105802

PATIENT
  Age: 72 Year
  Sex: Male

DRUGS (11)
  1. DOXORUBICIN [Suspect]
     Active Substance: DOXORUBICIN
     Indication: Diffuse large B-cell lymphoma
     Dosage: UNK, 6 CYCLES OF R-CHOP REGIMEN
  2. DEXAMETHASONE [Suspect]
     Active Substance: DEXAMETHASONE
     Indication: Diffuse large B-cell lymphoma
     Dosage: 40 MILLIGRAM, QD, ONE CYCLE OF R-DHAC REGIMEN; FOR DAYS 1?4
  3. DEXAMETHASONE [Suspect]
     Active Substance: DEXAMETHASONE
     Indication: Diffuse large B-cell lymphoma
     Dosage: 10 MILLIGRAM, BID
  4. RITUXIMAB [Suspect]
     Active Substance: RITUXIMAB
     Indication: Diffuse large B-cell lymphoma
     Dosage: UNK, 6 CYCLES OF R-CHOP REGIMEN
  5. RITUXIMAB [Suspect]
     Active Substance: RITUXIMAB
     Dosage: UNK, ONE CYCLE OF R-DHAC REGIMEN
  6. CYCLOPHOSPHAMIDE [Suspect]
     Active Substance: CYCLOPHOSPHAMIDE
     Indication: Diffuse large B-cell lymphoma
     Dosage: UNK, 6 CYCLES OF R-CHOP REGIMEN
  7. VINCRISTINE [Suspect]
     Active Substance: VINCRISTINE
     Indication: Diffuse large B-cell lymphoma
     Dosage: UNK, 6 CYCLES OF R-CHOP REGIMEN
  8. PREDNISOLONE [Suspect]
     Active Substance: PREDNISOLONE
     Indication: Diffuse large B-cell lymphoma
     Dosage: 100 MILLIGRAM, QD, 6 CYCLES OF R-CHOP REGIMEN; FROM DAYS 1 TO 5 OF EACH CYCLE
  9. CYTARABINE [Suspect]
     Active Substance: CYTARABINE
     Indication: Diffuse large B-cell lymphoma
     Dosage: UNK, ONE CYCLE OF R-DHAC REGIMEN
  10. CARBOPLATIN [Suspect]
     Active Substance: CARBOPLATIN
     Indication: Diffuse large B-cell lymphoma
     Dosage: UNK, ONE CYCLE OF R-DHAC REGIMEN
  11. EPCORITAMAB [Concomitant]
     Active Substance: EPCORITAMAB
     Indication: Diffuse large B-cell lymphoma
     Dosage: UNK, QW

REACTIONS (3)
  - Drug ineffective [Unknown]
  - Pancreatogenous diabetes [Recovering/Resolving]
  - Steroid diabetes [Recovering/Resolving]
